FAERS Safety Report 20603249 (Version 1)
Quarter: 2022Q1

REPORT INFORMATION
  Report Type: Report from Study
  Country: CA (occurrence: CA)
  Receive Date: 20220316
  Receipt Date: 20220316
  Transmission Date: 20220423
  Serious: Yes (Death, Hospitalization, Other)
  Sender: FDA-Public Use
  Company Number: CA-PFIZER INC-202200371172

PATIENT
  Age: 65 Year
  Sex: Female
  Weight: 99 kg

DRUGS (10)
  1. HYDROMORPHONE HYDROCHLORIDE [Suspect]
     Active Substance: HYDROMORPHONE HYDROCHLORIDE
     Indication: Pain
     Dosage: 1 MG, 1 EVERY 2 HOURS
     Route: 065
  2. LANREOTIDE ACETATE [Suspect]
     Active Substance: LANREOTIDE ACETATE
     Indication: Neuroendocrine carcinoma metastatic
     Dosage: 120 MG, 1 EVERY 2 WEEKS
     Route: 058
  3. LANREOTIDE ACETATE [Suspect]
     Active Substance: LANREOTIDE ACETATE
     Dosage: 180 MG, 1 EVERY 2 WEEKS
     Route: 058
  4. LANREOTIDE ACETATE [Suspect]
     Active Substance: LANREOTIDE ACETATE
     Dosage: 120 MG, 1 EVERY 4 WEEKS
     Route: 058
  5. LANREOTIDE ACETATE [Suspect]
     Active Substance: LANREOTIDE ACETATE
     Dosage: 120 MG, 1 EVERY 14 DAYS
     Route: 058
  6. ASPIRIN [Concomitant]
     Active Substance: ASPIRIN
     Dosage: 81 MG, 1X/DAY
  7. LASIX [Concomitant]
     Active Substance: FUROSEMIDE
     Dosage: 60 MG, 2X/DAY
  8. LASIX [Concomitant]
     Active Substance: FUROSEMIDE
     Dosage: UNK, 1X/DAY
  9. METFORMIN HYDROCHLORIDE\SITAGLIPTIN PHOSPHATE [Concomitant]
     Active Substance: METFORMIN HYDROCHLORIDE\SITAGLIPTIN PHOSPHATE
     Indication: Type 2 diabetes mellitus
     Dosage: 1 DF, 1X/DAY
  10. OCTREOTIDE ACETATE [Concomitant]
     Active Substance: OCTREOTIDE ACETATE
     Indication: Neuroendocrine tumour
     Dosage: 200 UG, AS NEEDED
     Route: 058

REACTIONS (60)
  - Death [Fatal]
  - Abdominal pain upper [Unknown]
  - Ascites [Unknown]
  - Asthenia [Unknown]
  - Carcinoid syndrome [Unknown]
  - Cellulitis [Unknown]
  - Chest pain [Unknown]
  - Complex regional pain syndrome [Unknown]
  - Constipation [Unknown]
  - Contusion [Unknown]
  - Decreased appetite [Unknown]
  - Dry mouth [Unknown]
  - Eating disorder [Unknown]
  - Eructation [Unknown]
  - Erythema [Unknown]
  - Eye contusion [Unknown]
  - Eye movement disorder [Unknown]
  - Faeces discoloured [Unknown]
  - Faeces hard [Unknown]
  - Fall [Unknown]
  - Finger deformity [Unknown]
  - Flatulence [Unknown]
  - Flushing [Unknown]
  - Fracture [Unknown]
  - Gait disturbance [Unknown]
  - Hypertension [Unknown]
  - Hypotension [Unknown]
  - Injection site mass [Unknown]
  - Injection site pain [Recovered/Resolved]
  - Injection site pruritus [Unknown]
  - Intestinal obstruction [Unknown]
  - Joint swelling [Unknown]
  - Localised oedema [Unknown]
  - Malignant neoplasm progression [Unknown]
  - Malignant peritoneal neoplasm [Unknown]
  - Muscular weakness [Unknown]
  - Nausea [Unknown]
  - Oedema peripheral [Unknown]
  - Off label use [Unknown]
  - Product lot number issue [Unknown]
  - Pain in extremity [Unknown]
  - Pleural effusion [Unknown]
  - Procedural nausea [Unknown]
  - Procedural pain [Unknown]
  - Procedural vomiting [Unknown]
  - Pseudostroke [Unknown]
  - Renal artery thrombosis [Unknown]
  - Renal cancer [Unknown]
  - Renal failure [Unknown]
  - Terminal state [Unknown]
  - Therapeutic embolisation [Unknown]
  - Tooth disorder [Unknown]
  - Unresponsive to stimuli [Unknown]
  - Weight decreased [Unknown]
  - Weight increased [Unknown]
  - Abdominal pain [Recovered/Resolved]
  - Blood pressure decreased [Recovered/Resolved]
  - Faecal vomiting [Recovered/Resolved]
  - Syncope [Recovered/Resolved]
  - Vomiting [Recovered/Resolved]
